FAERS Safety Report 4505095-2 (Version None)
Quarter: 2004Q4

REPORT INFORMATION
  Report Type: 
  Country: None (occurrence: None)
  Receive Date: 20041119
  Receipt Date: 20041111
  Transmission Date: 20050328
  Serious: Yes (Death)
  Sender: FDA-Public Use
  Company Number: JP-ABBOTT-04P-087-0280757-00

PATIENT
  Sex: Male

DRUGS (17)
  1. KALETRA [Suspect]
     Indication: HIV INFECTION
     Route: 048
     Dates: start: 20030711, end: 20030913
  2. LAMIVUDINE [Concomitant]
     Indication: HIV INFECTION
     Route: 048
     Dates: start: 20030414, end: 20030501
  3. LAMIVUDINE [Concomitant]
     Route: 048
     Dates: start: 20030606, end: 20030913
  4. STAVUDINE [Concomitant]
     Indication: HIV INFECTION
     Route: 048
     Dates: start: 20030414, end: 20030501
  5. STAVUDINE [Concomitant]
     Route: 048
     Dates: start: 20030606, end: 20030913
  6. NELFINAVIR [Concomitant]
     Indication: HIV INFECTION
     Route: 048
     Dates: start: 20030414, end: 20030501
  7. NELFINAVIR [Concomitant]
     Route: 048
     Dates: start: 20030606, end: 20030710
  8. PENTAMIDINE HYDROCHLORIDE [Concomitant]
     Indication: INFECTION PROPHYLAXIS
     Route: 042
     Dates: start: 20030807, end: 20030827
  9. DAPSONE [Concomitant]
     Indication: INFECTION PROPHYLAXIS
     Dates: start: 20030828, end: 20030913
  10. GANCICLOVIR [Concomitant]
     Indication: CYTOMEGALOVIRUS INFECTION
     Route: 042
     Dates: start: 20030519, end: 20030602
  11. CEFAZOLIN SODIUM [Concomitant]
     Indication: PNEUMONIA
     Dates: start: 20030612, end: 20030616
  12. FLUCONAZOLE [Concomitant]
     Indication: PNEUMONIA
     Dates: start: 20030612, end: 20030616
  13. FLUCONAZOLE [Concomitant]
     Dates: start: 20030630, end: 20030710
  14. CLARITHROMYCIN [Concomitant]
     Indication: MYCOBACTERIUM AVIUM COMPLEX INFECTION
     Route: 048
     Dates: start: 20030614, end: 20030717
  15. ETHAMBUTOL HYDROCHLORIDE [Concomitant]
     Indication: MYCOBACTERIUM AVIUM COMPLEX INFECTION
     Route: 048
     Dates: start: 20030614, end: 20030717
  16. AMIKACIN SULFATE [Concomitant]
     Indication: MYCOBACTERIUM AVIUM COMPLEX INFECTION
     Dates: start: 20030614, end: 20030627
  17. AMIKACIN SULFATE [Concomitant]
     Indication: PNEUMONIA
     Dates: start: 20030710, end: 20030825

REACTIONS (9)
  - CONDITION AGGRAVATED [None]
  - CYTOMEGALOVIRUS INFECTION [None]
  - DEPRESSED LEVEL OF CONSCIOUSNESS [None]
  - DYSPHAGIA [None]
  - KAPOSI'S SARCOMA [None]
  - LYMPHOMA [None]
  - MYCOBACTERIUM AVIUM COMPLEX INFECTION [None]
  - OESOPHAGEAL CARCINOMA [None]
  - PNEUMONIA [None]
